FAERS Safety Report 18781763 (Version 1)
Quarter: 2021Q1

REPORT INFORMATION
  Report Type: Spontaneous
  Country: US (occurrence: US)
  Receive Date: 20210125
  Receipt Date: 20210125
  Transmission Date: 20210419
  Serious: No
  Sender: FDA-Public Use
  Company Number: US-ALLERGAN-2045864US

PATIENT

DRUGS (1)
  1. RESTASIS [Suspect]
     Active Substance: CYCLOSPORINE
     Indication: PRODUCT USED FOR UNKNOWN INDICATION

REACTIONS (7)
  - Product quality issue [Unknown]
  - Eye irritation [Unknown]
  - Ocular hyperaemia [Unknown]
  - Pain [Unknown]
  - Vision blurred [Unknown]
  - Drug ineffective [Unknown]
  - Dry eye [Unknown]
